FAERS Safety Report 7559347-2 (Version None)
Quarter: 2011Q2

REPORT INFORMATION
  Report Type: 
  Country: None (occurrence: None)
  Receive Date: 20110617
  Receipt Date: 20110617
  Transmission Date: 20111010
  Serious: Yes (Hospitalization)
  Sender: FDA-Public Use
  Company Number: None

PATIENT
  Sex: Female
  Weight: 85.7 kg

DRUGS (2)
  1. GEMCITABINE HYDROCHLORIDE [Suspect]
     Dosage: 5348 MG
  2. TARCEVA [Suspect]
     Dosage: 2600 MG

REACTIONS (4)
  - BODY TEMPERATURE INCREASED [None]
  - NITRITE URINE PRESENT [None]
  - DYSURIA [None]
  - BACTERIAL TEST POSITIVE [None]
